FAERS Safety Report 25137859 (Version 1)
Quarter: 2025Q1

REPORT INFORMATION
  Report Type: Spontaneous
  Country: BG (occurrence: BG)
  Receive Date: 20250329
  Receipt Date: 20250329
  Transmission Date: 20250409
  Serious: Yes (Hospitalization)
  Sender: UNICHEM
  Company Number: BG-UNICHEM LABORATORIES LIMITED-UNI-2025-BG-001623

PATIENT

DRUGS (8)
  1. VALSARTAN [Suspect]
     Active Substance: VALSARTAN
     Indication: Hypertensive heart disease
     Route: 065
  2. BISOPROLOL [Suspect]
     Active Substance: BISOPROLOL
     Indication: Hypertensive heart disease
     Route: 065
  3. CHLORTHALIDONE [Suspect]
     Active Substance: CHLORTHALIDONE
     Indication: Hypertensive heart disease
     Route: 065
  4. CLOPIDOGREL [Suspect]
     Active Substance: CLOPIDOGREL BISULFATE
     Indication: Hypertensive heart disease
     Route: 065
  5. ROSUVASTATIN [Suspect]
     Active Substance: ROSUVASTATIN
     Indication: Hypertensive heart disease
     Route: 065
  6. SPIRONOLACTONE [Suspect]
     Active Substance: SPIRONOLACTONE
     Indication: Hypertensive heart disease
     Route: 065
  7. BETAHISTINE [Suspect]
     Active Substance: BETAHISTINE
     Indication: Hypertensive heart disease
     Route: 065
  8. MOXONIDINE [Concomitant]
     Active Substance: MOXONIDINE
     Indication: Hypertensive heart disease
     Route: 065

REACTIONS (2)
  - Lichen planopilaris [Recovering/Resolving]
  - Escherichia urinary tract infection [Recovering/Resolving]
